FAERS Safety Report 9308820 (Version 2)
Quarter: 2013Q2

REPORT INFORMATION
  Report Type: Spontaneous
  Country: VE (occurrence: VE)
  Receive Date: 20130524
  Receipt Date: 20130531
  Transmission Date: 20140414
  Serious: Yes (Other)
  Sender: FDA-Public Use
  Company Number: VE-ELI_LILLY_AND_COMPANY-VE201304007598

PATIENT
  Age: 31 Year
  Sex: Female

DRUGS (3)
  1. HUMALOG 25% LISPRO, 75% NPL [Suspect]
     Indication: TYPE 1 DIABETES MELLITUS
     Dosage: 35 IU, EACH MORNING
     Dates: start: 20130418
  2. HUMALOG 25% LISPRO, 75% NPL [Suspect]
     Dosage: 15 IU, EACH EVENING
     Dates: start: 20130418
  3. FOLIC ACID [Concomitant]
     Indication: PREGNANCY

REACTIONS (4)
  - Abortion spontaneous [Unknown]
  - Blood glucose abnormal [Unknown]
  - Drug ineffective [Unknown]
  - Maternal exposure during pregnancy [Recovered/Resolved]
